FAERS Safety Report 12126671 (Version 1)
Quarter: 2016Q1

REPORT INFORMATION
  Report Type: Spontaneous
  Country: US (occurrence: US)
  Receive Date: 20160229
  Receipt Date: 20160229
  Transmission Date: 20160526
  Serious: No
  Sender: FDA-Public Use
  Company Number: US-GLAXOSMITHKLINE-US2016024778

PATIENT
  Sex: Female

DRUGS (1)
  1. ADVAIR DISKUS [Suspect]
     Active Substance: FLUTICASONE PROPIONATE\SALMETEROL XINAFOATE
     Indication: ASTHMA
     Dosage: 1 PUFF(S), BID
     Route: 055

REACTIONS (5)
  - Nasopharyngitis [Recovering/Resolving]
  - Dyspnoea [Recovering/Resolving]
  - Wheezing [Recovering/Resolving]
  - Drug ineffective [Recovering/Resolving]
  - Bronchitis [Recovering/Resolving]
